FAERS Safety Report 9468446 (Version 5)
Quarter: 2014Q2

REPORT INFORMATION
  Report Type: Report from Study
  Country: CA (occurrence: CA)
  Receive Date: 20130821
  Receipt Date: 20140423
  Transmission Date: 20141212
  Serious: Yes (Hospitalization, Other)
  Sender: FDA-Public Use
  Company Number: CA-ROCHE-1262416

PATIENT
  Age: 68 Year
  Sex: Female
  Weight: 60 kg

DRUGS (10)
  1. ACTEMRA [Suspect]
     Indication: RHEUMATOID ARTHRITIS
     Route: 042
     Dates: start: 20130514, end: 20140307
  2. ARAVA [Concomitant]
     Route: 065
  3. PREDNISONE [Concomitant]
  4. APO-RISEDRONATE [Concomitant]
     Indication: OSTEOPOROSIS
     Route: 048
  5. VALSARTAN SANDOZ [Concomitant]
     Route: 048
  6. SYNTHROID [Concomitant]
     Route: 048
  7. CO-SIMVASTATIN (CANADA) [Concomitant]
     Indication: BLOOD CHOLESTEROL
     Route: 048
  8. DETROL [Concomitant]
     Indication: BLADDER SPASM
     Route: 048
  9. SOFLAX (CANADA) [Concomitant]
     Dosage: AS REQUIRED
     Route: 065
  10. RABEPRAZOLE [Concomitant]
     Route: 065

REACTIONS (4)
  - Blood count abnormal [Unknown]
  - Fibromyalgia [Not Recovered/Not Resolved]
  - Neutrophil count decreased [Not Recovered/Not Resolved]
  - Drug effect decreased [Unknown]
